FAERS Safety Report 9217872 (Version 1)
Quarter: 2013Q2

REPORT INFORMATION
  Report Type: Spontaneous
  Country: GB (occurrence: GB)
  Receive Date: 20130408
  Receipt Date: 20130408
  Transmission Date: 20140414
  Serious: Yes (Other)
  Sender: FDA-Public Use
  Company Number: GB-PFIZER INC-2013108068

PATIENT
  Age: 66 Year
  Sex: Male

DRUGS (5)
  1. ATORVASTATIN [Suspect]
     Dosage: 10 MG, DAILY
     Route: 048
     Dates: start: 201208
  2. VERAPAMIL HYDROCHLORIDE [Interacting]
     Dosage: 240 MG, 1X/DAY
     Route: 048
  3. METFORMIN [Concomitant]
     Indication: DIABETES MELLITUS
     Dosage: 1000 MG (2 TABLETS OF 500 MG), 2X/DAY
  4. GLIPIZIDE [Concomitant]
     Indication: DIABETES MELLITUS
     Dosage: 5 MG (1 TABLET), 3X/DAY
  5. EXENATIDE [Concomitant]
     Indication: DIABETES MELLITUS
     Dosage: 10 MG (1 DOSAGE FORM), 2X/DAY

REACTIONS (2)
  - Drug interaction [Not Recovered/Not Resolved]
  - Palpitations [Not Recovered/Not Resolved]
